FAERS Safety Report 7553566-7 (Version None)
Quarter: 2011Q2

REPORT INFORMATION
  Report Type: 
  Country: None (occurrence: None)
  Receive Date: 20110609
  Receipt Date: 20110527
  Transmission Date: 20111010
  Serious: Yes (Hospitalization)
  Sender: FDA-Public Use
  Company Number: 938678

PATIENT
  Sex: Female

DRUGS (8)
  1. VANCOMYCIN HYCHLORIDE [Suspect]
     Indication: PRODUCT USED FOR UNKNOWN INDICATION
  2. (PHOSPHATE /01318702/) [Suspect]
     Indication: PRODUCT USED FOR UNKNOWN INDICATION
  3. FUROSEMIDE [Suspect]
     Indication: PRODUCT USED FOR UNKNOWN INDICATION
  4. NOREPINEPHRINE BITARTRATE [Suspect]
     Indication: PRODUCT USED FOR UNKNOWN INDICATION
  5. MEROPENEM [Suspect]
     Indication: PRODUCT USED FOR UNKNOWN INDICATION
  6. ACETAMINOPHEN [Suspect]
     Indication: PRODUCT USED FOR UNKNOWN INDICATION
  7. PHENTOLAMINE MESYLATE [Concomitant]
  8. PROPOFOL [Suspect]
     Indication: PRODUCT USED FOR UNKNOWN INDICATION

REACTIONS (4)
  - OEDEMA [None]
  - DEVICE RELATED SEPSIS [None]
  - HYPERTENSION [None]
  - ABDOMINAL SEPSIS [None]
